FAERS Safety Report 4470121-6 (Version None)
Quarter: 2004Q3

REPORT INFORMATION
  Report Type: 
  Country: None (occurrence: None)
  Receive Date: 20040910
  Receipt Date: 20040709
  Transmission Date: 20050211
  Serious: No
  Sender: FDA-Public Use
  Company Number: 2004223592US

PATIENT
  Age: 63 Year
  Sex: Female
  Weight: 77.1 kg

DRUGS (13)
  1. BEXTRA [Suspect]
     Indication: ARTHRITIS
     Dosage: 10 MG, QD
     Dates: start: 20040701, end: 20040707
  2. LIPITOR [Concomitant]
  3. ATENOLOL [Concomitant]
  4. TRIAMTERENE [Concomitant]
  5. ALLEGRA [Concomitant]
  6. CELEBREX [Concomitant]
  7. ISOSORBIDE (ISOSORBIDE) [Concomitant]
  8. VITAMIN E [Concomitant]
  9. VITAMIN C [Concomitant]
  10. CALCIUM [Concomitant]
  11. ASPIRIN [Concomitant]
  12. MAGNESIUM [Concomitant]
  13. NEXIUM [Concomitant]

REACTIONS (3)
  - DYSPHAGIA [None]
  - OROPHARYNGEAL SWELLING [None]
  - SWOLLEN TONGUE [None]
